FAERS Safety Report 19265051 (Version 2)
Quarter: 2021Q2

REPORT INFORMATION
  Report Type: Spontaneous
  Country: CN (occurrence: CN)
  Receive Date: 20210517
  Receipt Date: 20210608
  Transmission Date: 20210717
  Serious: Yes (Death, Life-Threatening, Other)
  Sender: FDA-Public Use
  Company Number: CN-AMGEN-CHNSP2021074364

PATIENT
  Age: 75 Year
  Sex: Female

DRUGS (10)
  1. CORLENTOR [Suspect]
     Active Substance: IVABRADINE HYDROCHLORIDE
     Indication: OFF LABEL USE
     Dosage: 5 MILLIGRAM, BID
     Route: 048
     Dates: start: 20210510, end: 20210510
  2. CORLENTOR [Suspect]
     Active Substance: IVABRADINE HYDROCHLORIDE
     Indication: CARDIAC FAILURE ACUTE
     Dosage: 2.5 MILLIGRAM, BID
     Route: 048
     Dates: start: 20210507, end: 20210510
  3. DESLANOSIDE [Concomitant]
     Active Substance: DESLANOSIDE
     Indication: PRODUCT USED FOR UNKNOWN INDICATION
     Dosage: UNK
  4. AMIODARONE HYDROCHLORIDE. [Suspect]
     Active Substance: AMIODARONE HYDROCHLORIDE
     Indication: HEART RATE IRREGULAR
     Dosage: 200 MG, BID
     Route: 048
     Dates: start: 20210507, end: 20210510
  5. SHAKUBATROVALSARTAN [Concomitant]
     Indication: PRODUCT USED FOR UNKNOWN INDICATION
     Dosage: 50 MILLIGRAM, BID
     Route: 048
  6. INDOPROFEN [Concomitant]
     Active Substance: INDOPROFEN
     Indication: PRODUCT USED FOR UNKNOWN INDICATION
     Dosage: 0.1 GRAM, BID
     Route: 048
  7. MOSAPRIDE CITRATE [Concomitant]
     Active Substance: MOSAPRIDE CITRATE
     Indication: PRODUCT USED FOR UNKNOWN INDICATION
     Dosage: 5 MILLIGRAM, TID
     Route: 048
  8. DOMPERIDONE [Concomitant]
     Active Substance: DOMPERIDONE
     Indication: PRODUCT USED FOR UNKNOWN INDICATION
     Dosage: 10 MILLIGRAM, TID
     Route: 048
  9. DIGOXIN. [Suspect]
     Active Substance: DIGOXIN
     Indication: PROPHYLAXIS
     Dosage: 0.125 MG, QD
     Route: 065
     Dates: start: 20210430, end: 20210510
  10. FLUPENTIXOL [Concomitant]
     Active Substance: FLUPENTIXOL
     Indication: PRODUCT USED FOR UNKNOWN INDICATION
     Dosage: 1 DOSAGE FORM, QD
     Route: 048

REACTIONS (5)
  - Atrial fibrillation [Fatal]
  - Loss of consciousness [Unknown]
  - Supraventricular tachycardia [Fatal]
  - Ventricular fibrillation [Fatal]
  - Sinus arrest [Fatal]

NARRATIVE: CASE EVENT DATE: 20210510
